FAERS Safety Report 8482681-9 (Version None)
Quarter: 2012Q3

REPORT INFORMATION
  Report Type: 
  Country: None (occurrence: None)
  Receive Date: 20120702
  Receipt Date: 20120627
  Transmission Date: 20120928
  Serious: Yes (Hospitalization, Disabling, Other)
  Sender: FDA-Public Use
  Company Number: US-MERCK-1201USA04017

PATIENT
  Age: 41 Year
  Sex: Female

DRUGS (7)
  1. FOSAMAX PLUS D [Suspect]
     Indication: OSTEOPOROSIS PROPHYLAXIS
     Route: 048
     Dates: start: 20040311, end: 20100302
  2. CALCIUM (UNSPECIFIED) [Concomitant]
     Route: 065
  3. SYNTHROID [Concomitant]
     Indication: HYPOTHYROIDISM
     Route: 065
     Dates: start: 19710101
  4. FOSAMAX [Suspect]
     Indication: OSTEOPOROSIS PROPHYLAXIS
     Route: 048
     Dates: start: 19960101
  5. ESTROGENS, CONJUGATED AND PROGESTERONE [Concomitant]
     Indication: HORMONE REPLACEMENT THERAPY
     Route: 065
     Dates: start: 19930101, end: 20070101
  6. FOSAMAX [Suspect]
     Route: 048
     Dates: start: 20040311, end: 20100302
  7. FOSAMAX [Suspect]
     Route: 048

REACTIONS (16)
  - ARTHRITIS [None]
  - ARTHRALGIA [None]
  - HYPERTENSION [None]
  - PANIC ATTACK [None]
  - INTERVERTEBRAL DISC DISORDER [None]
  - SINUS DISORDER [None]
  - ANXIETY [None]
  - TOOTH DISORDER [None]
  - FEMUR FRACTURE [None]
  - MIGRAINE [None]
  - FALL [None]
  - NEUROPATHY PERIPHERAL [None]
  - FOOT FRACTURE [None]
  - WOUND DEHISCENCE [None]
  - DEPRESSION [None]
  - HYPERLIPIDAEMIA [None]
